FAERS Safety Report 6800402-X (Version None)
Quarter: 2010Q2

REPORT INFORMATION
  Report Type: 
  Country: None (occurrence: None)
  Receive Date: 20100629
  Receipt Date: 20100628
  Transmission Date: 20101027
  Serious: Yes (Other)
  Sender: FDA-Public Use
  Company Number: US-ABBOTT-10P-163-0652608-00

PATIENT
  Sex: Female
  Weight: 95.34 kg

DRUGS (5)
  1. HUMIRA [Suspect]
     Indication: RHEUMATOID ARTHRITIS
     Route: 058
     Dates: start: 20080901, end: 20100401
  2. CALCIUM WITH VITAMIN D (NON-ABBOTT) [Suspect]
     Indication: DRUG USE FOR UNKNOWN INDICATION
     Dates: end: 20090101
  3. METHOTREXATE SODIUM [Suspect]
     Indication: RHEUMATOID ARTHRITIS
     Dates: start: 20080101, end: 20090101
  4. PREDNISONE [Concomitant]
     Indication: RHEUMATOID ARTHRITIS
     Dosage: TAPER
     Dates: start: 20080101, end: 20080101
  5. PREDNISONE [Concomitant]
     Indication: BRONCHITIS
     Dates: end: 20090101

REACTIONS (15)
  - ABDOMINAL MASS [None]
  - ABDOMINAL PAIN [None]
  - BRONCHITIS [None]
  - CONTUSION [None]
  - KIDNEY INFECTION [None]
  - LYMPH NODE PAIN [None]
  - LYMPHADENOPATHY [None]
  - LYMPHATIC SYSTEM NEOPLASM [None]
  - NEPHROLITHIASIS [None]
  - POST PROCEDURAL OEDEMA [None]
  - PROCEDURAL PAIN [None]
  - PULMONARY MASS [None]
  - PYREXIA [None]
  - SINUSITIS [None]
  - VOMITING [None]
